FAERS Safety Report 19194096 (Version 1)
Quarter: 2021Q2

REPORT INFORMATION
  Report Type: Spontaneous
  Country: US (occurrence: US)
  Receive Date: 20210428
  Receipt Date: 20210428
  Transmission Date: 20210717
  Serious: Yes (Hospitalization)
  Sender: FDA-Public Use
  Company Number: None

PATIENT
  Sex: Male

DRUGS (7)
  1. TOBRAMYCIN. [Suspect]
     Active Substance: TOBRAMYCIN
     Indication: LUNG DISORDER
     Route: 055
     Dates: start: 20200731
  2. DIAZEPAM GEL [Concomitant]
     Active Substance: DIAZEPAM
  3. CIPRODEXA [Concomitant]
  4. CIPROPLOXACN [Concomitant]
  5. NEBUSAL NEB [Concomitant]
  6. PENICILLIN VK [Concomitant]
     Active Substance: PENICILLIN V POTASSIUM
  7. PREDNISOLONE. [Concomitant]
     Active Substance: PREDNISOLONE

REACTIONS (2)
  - Pyrexia [None]
  - Nasopharyngitis [None]
